FAERS Safety Report 21947457 (Version 3)
Quarter: 2023Q1

REPORT INFORMATION
  Report Type: Other
  Country: PK (occurrence: None)
  Receive Date: 20230202
  Receipt Date: 20230220
  Transmission Date: 20230417
  Serious: Yes (Death)
  Sender: FDA-Public Use
  Company Number: PK-ROCHE-3277699

PATIENT
  Age: 68 Year
  Sex: Male

DRUGS (1)
  1. RITUXIMAB [Suspect]
     Active Substance: RITUXIMAB
     Indication: Diffuse large B-cell lymphoma
     Route: 042
     Dates: start: 20220927, end: 20221012

REACTIONS (2)
  - Death [Fatal]
  - Disease progression [Fatal]

NARRATIVE: CASE EVENT DATE: 20230120
